FAERS Safety Report 9363339 (Version 2)
Quarter: 2013Q4

REPORT INFORMATION
  Report Type: Report from Study
  Country: DE (occurrence: DE)
  Receive Date: 20130624
  Receipt Date: 20131001
  Transmission Date: 20140711
  Serious: Yes (Hospitalization)
  Sender: FDA-Public Use
  Company Number: DE-VERTEX PHARMACEUTICALS INC-2013-007330

PATIENT
  Age: 51 Year
  Sex: Male
  Weight: 117 kg

DRUGS (4)
  1. VX-950 (TELAPREVIR) [Suspect]
     Indication: HEPATITIS C
     Dosage: 2250 MG, UNK
     Route: 048
     Dates: start: 20120823, end: 20121115
  2. PEGINTERFERON ALFA [Suspect]
     Indication: HEPATITIS C
     Dosage: 180 ?G, UNK
     Route: 058
     Dates: start: 20120823, end: 20130718
  3. RIBAVIRIN [Suspect]
     Indication: HEPATITIS C
     Dosage: 1200 MG, UNK
     Route: 048
     Dates: start: 20120823, end: 20130725
  4. IBUPROFEN [Concomitant]
     Indication: PROPHYLAXIS
     Dosage: 600 MG, PRN
     Route: 048
     Dates: start: 20120823

REACTIONS (1)
  - Abscess limb [Recovered/Resolved]
